FAERS Safety Report 16077113 (Version 1)
Quarter: 2019Q1

REPORT INFORMATION
  Report Type: Report from Study
  Country: ES (occurrence: ES)
  Receive Date: 20190315
  Receipt Date: 20190315
  Transmission Date: 20190418
  Serious: Yes (Other)
  Sender: FDA-Public Use
  Company Number: ES-TEVA-2019-ES-1023485

PATIENT
  Age: 2 Year
  Sex: Male

DRUGS (2)
  1. CICLOSPORINA (406A) [Suspect]
     Active Substance: CYCLOSPORINE
     Indication: PROPHYLAXIS AGAINST TRANSPLANT REJECTION
     Route: 048
     Dates: start: 20171123
  2. ESTILSONA 7 MG/ML GOTAS ORALES EN SUSPENSI?N, 1 FRASCO DE 10 ML [Interacting]
     Active Substance: PREDNISOLONE STEAGLATE
     Indication: PROPHYLAXIS AGAINST TRANSPLANT REJECTION
     Route: 048
     Dates: start: 20171117

REACTIONS (2)
  - Parainfluenzae virus infection [Recovered/Resolved]
  - Drug interaction [Unknown]

NARRATIVE: CASE EVENT DATE: 20171212
